FAERS Safety Report 7323195-9 (Version None)
Quarter: 2011Q1

REPORT INFORMATION
  Report Type: 
  Country: None (occurrence: None)
  Receive Date: 20110301
  Receipt Date: 20110218
  Transmission Date: 20110831
  Serious: Yes (Other)
  Sender: FDA-Public Use
  Company Number: RU-SANOFI-AVENTIS-2011SA010524

PATIENT
  Age: 58 Year
  Sex: Female

DRUGS (2)
  1. ARAVA [Suspect]
     Route: 048
  2. METHOTREXATE [Concomitant]

REACTIONS (2)
  - HYPERTHERMIA [None]
  - LEUKOPENIA [None]
